FAERS Safety Report 5356441-1 (Version None)
Quarter: 2007Q2

REPORT INFORMATION
  Report Type: 
  Country: None (occurrence: None)
  Receive Date: 20070530
  Receipt Date: 20061106
  Transmission Date: 20071010
  Serious: Yes (Other)
  Sender: FDA-Public Use
  Company Number: US200609000253

PATIENT
  Age: 42 Year
  Sex: Male
  Weight: 78.5 kg

DRUGS (1)
  1. ZYPREXA [Suspect]
     Dosage: 15 MG; 20 MG
     Dates: start: 20050101

REACTIONS (2)
  - DIABETES MELLITUS [None]
  - PANCREATITIS [None]
